FAERS Safety Report 21755890 (Version 2)
Quarter: 2022Q4

REPORT INFORMATION
  Report Type: Spontaneous
  Country: JP (occurrence: JP)
  Receive Date: 20221220
  Receipt Date: 20221222
  Transmission Date: 20230112
  Serious: Yes (Death, Hospitalization)
  Sender: FDA-Public Use
  Company Number: JP-DSJP-DSJ-2022-145963

PATIENT
  Age: 8 Decade
  Sex: Male
  Weight: 62.2 kg

DRUGS (2)
  1. ENHERTU [Suspect]
     Active Substance: FAM-TRASTUZUMAB DERUXTECAN-NXKI
     Indication: Adenocarcinoma gastric
     Dosage: 4.8 MG/KG, ONCE EVERY 3 WK
     Route: 041
     Dates: start: 20221114, end: 20221114
  2. ENHERTU [Suspect]
     Active Substance: FAM-TRASTUZUMAB DERUXTECAN-NXKI
     Indication: Adenocarcinoma gastric

REACTIONS (3)
  - Death [Fatal]
  - Pyrexia [Unknown]
  - Underdose [Unknown]

NARRATIVE: CASE EVENT DATE: 20221114
